FAERS Safety Report 25433273 (Version 1)
Quarter: 2025Q2

REPORT INFORMATION
  Report Type: Spontaneous
  Country: US (occurrence: US)
  Receive Date: 20250613
  Receipt Date: 20250613
  Transmission Date: 20250717
  Serious: No
  Sender: ALVOGEN
  Company Number: None

PATIENT

DRUGS (2)
  1. LISDEXAMFETAMINE [Suspect]
     Active Substance: LISDEXAMFETAMINE
     Indication: Attention deficit hyperactivity disorder
  2. LISDEXAMFETAMINE [Suspect]
     Active Substance: LISDEXAMFETAMINE
     Indication: Attention deficit hyperactivity disorder

REACTIONS (9)
  - Disturbance in attention [Unknown]
  - Distractibility [Unknown]
  - Social avoidant behaviour [Unknown]
  - Condition aggravated [Unknown]
  - Depression [Unknown]
  - Agitation [Unknown]
  - Anxiety [Unknown]
  - Drug ineffective [Unknown]
  - Product physical issue [Unknown]
